FAERS Safety Report 7204110-5 (Version None)
Quarter: 2010Q4

REPORT INFORMATION
  Report Type: 
  Country: None (occurrence: None)
  Receive Date: 20101230
  Receipt Date: 20101228
  Transmission Date: 20110411
  Serious: Yes (Life-Threatening)
  Sender: FDA-Public Use
  Company Number: FR-ROCHE-696383

PATIENT
  Sex: Female

DRUGS (11)
  1. PEGASYS [Suspect]
     Route: 058
     Dates: start: 20080701, end: 20091001
  2. CORDARONE [Concomitant]
  3. PRAZOSIN HCL [Concomitant]
     Dosage: ALPRESS LP 2.5
  4. NEXIUM [Concomitant]
     Dosage: INEXIUM 20
  5. ATHYMIL 10 [Concomitant]
  6. TRIATEC 5 [Concomitant]
  7. CONTRAMAL [Concomitant]
     Dosage: 2 IN MORNING, 1 IN LUNCH, 2 IN EVENG
  8. MORPHINE [Concomitant]
     Route: 058
  9. DIFFU K [Concomitant]
  10. DOLIPRANE [Concomitant]
  11. RIBAVIRIN [Concomitant]
     Dates: start: 20080701, end: 20091001

REACTIONS (2)
  - CARDIAC TAMPONADE [None]
  - PLEURAL EFFUSION [None]
